FAERS Safety Report 5239869-X (Version None)
Quarter: 2007Q1

REPORT INFORMATION
  Report Type: 
  Country: None (occurrence: None)
  Receive Date: 20070214
  Receipt Date: 20070214
  Transmission Date: 20070707
  Serious: Yes (Hospitalization)
  Sender: FDA-Public Use
  Company Number: None

PATIENT
  Age: 54 Year
  Sex: Male
  Weight: 83.9154 kg

DRUGS (2)
  1. ZOSYN [Suspect]
     Indication: CELLULITIS
     Dosage: 4.5 GM Q8H IV
     Route: 042
     Dates: start: 20070105, end: 20070205
  2. ZOSYN [Suspect]
     Indication: OSTEOMYELITIS
     Dosage: 4.5 GM Q8H IV
     Route: 042
     Dates: start: 20070105, end: 20070205

REACTIONS (9)
  - BLOOD CREATININE INCREASED [None]
  - EOSINOPHIL COUNT INCREASED [None]
  - FATIGUE [None]
  - HYPOTENSION [None]
  - MALAISE [None]
  - PYREXIA [None]
  - RASH [None]
  - WHITE BLOOD CELL COUNT DECREASED [None]
  - WHITE BLOOD CELL COUNT INCREASED [None]
